FAERS Safety Report 5132798-1 (Version None)
Quarter: 2006Q4

REPORT INFORMATION
  Report Type: 
  Country: None (occurrence: None)
  Receive Date: 20061023
  Receipt Date: 20061016
  Transmission Date: 20070319
  Serious: Yes (Death)
  Sender: FDA-Public Use
  Company Number: US-MERCK-0610USA10287

PATIENT
  Age: 67 Year
  Sex: Female

DRUGS (11)
  1. DECADRON [Suspect]
     Indication: MANTLE CELL LYMPHOMA
     Route: 048
  2. DECADRON [Suspect]
     Route: 048
  3. RITUXIMAB [Concomitant]
     Indication: MANTLE CELL LYMPHOMA
     Route: 065
  4. CYCLOPHOSPHAMIDE [Concomitant]
     Indication: MANTLE CELL LYMPHOMA
     Route: 042
  5. DOXORUBICIN [Concomitant]
     Indication: MANTLE CELL LYMPHOMA
     Route: 041
  6. VINCRISTINE SULFATE [Concomitant]
     Indication: MANTLE CELL LYMPHOMA
     Route: 042
  7. FILGRASTIM [Concomitant]
     Indication: MANTLE CELL LYMPHOMA
     Route: 058
  8. ALLOPURINOL SODIUM [Concomitant]
     Route: 048
  9. ACETAMINOPHEN [Concomitant]
     Route: 048
  10. DIPHENHYDRAMINE HYDROCHLORIDE [Concomitant]
     Route: 048
  11. TRIMETHOPRIM AND SULFAMETHOXAZOLE [Concomitant]
     Route: 065

REACTIONS (2)
  - INFECTION MASKED [None]
  - PSEUDOMONAS INFECTION [None]
